FAERS Safety Report 22876230 (Version 2)
Quarter: 2023Q4

REPORT INFORMATION
  Report Type: Report from Study
  Country: GR (occurrence: GR)
  Receive Date: 20230829
  Receipt Date: 20231010
  Transmission Date: 20240110
  Serious: Yes (Other)
  Sender: FDA-Public Use
  Company Number: GR-CELLTRION INC.-2023GR016922

PATIENT

DRUGS (6)
  1. INFLIXIMAB [Suspect]
     Active Substance: INFLIXIMAB
     Indication: Psoriatic arthropathy
     Dosage: 400 MG/EVERY 7 WEEKS
     Route: 041
     Dates: start: 20230630
  2. INFLIXIMAB [Suspect]
     Active Substance: INFLIXIMAB
     Dosage: 400 MG/EVERY 7 WEEKS
     Route: 041
     Dates: start: 20230714
  3. INFLIXIMAB [Suspect]
     Active Substance: INFLIXIMAB
     Dosage: 400 MG/EVERY 7 WEEKS
     Route: 041
     Dates: start: 20230811
  4. EUTHYROX [Concomitant]
     Active Substance: LEVOTHYROXINE SODIUM
     Dosage: UNK
  5. ARAVA [Concomitant]
     Active Substance: LEFLUNOMIDE
  6. EZETIMIBE\SIMVASTATIN [Concomitant]
     Active Substance: EZETIMIBE\SIMVASTATIN
     Dosage: CONCENTRATION: 10 MG /40 MG

REACTIONS (6)
  - Blood pressure increased [Unknown]
  - Hepatic enzyme increased [Unknown]
  - Fatigue [Unknown]
  - Palpitations [Unknown]
  - Intentional dose omission [Unknown]
  - Intentional product use issue [Unknown]

NARRATIVE: CASE EVENT DATE: 20230101
